FAERS Safety Report 6747394-X (Version None)
Quarter: 2010Q2

REPORT INFORMATION
  Report Type: 
  Country: None (occurrence: None)
  Receive Date: 20100528
  Receipt Date: 20100527
  Transmission Date: 20101027
  Serious: Yes (Hospitalization)
  Sender: FDA-Public Use
  Company Number: B0657757A

PATIENT
  Sex: Female

DRUGS (4)
  1. AUGMENTIN '125' [Suspect]
     Indication: PROPHYLAXIS
     Route: 042
  2. ATRACURIUM [Suspect]
     Route: 065
  3. PROPOFOL [Suspect]
     Route: 065
  4. BETADINE [Concomitant]
     Route: 065

REACTIONS (5)
  - BLOOD CREATININE INCREASED [None]
  - HAEMATURIA [None]
  - OLIGURIA [None]
  - PRODUCT QUALITY ISSUE [None]
  - RENAL FAILURE ACUTE [None]
